FAERS Safety Report 6822782-1 (Version None)
Quarter: 2010Q3

REPORT INFORMATION
  Report Type: 
  Country: None (occurrence: None)
  Receive Date: 20100708
  Receipt Date: 20100629
  Transmission Date: 20110219
  Serious: Yes (Other)
  Sender: FDA-Public Use
  Company Number: US-ELI_LILLY_AND_COMPANY-US201005002845

PATIENT
  Sex: Female

DRUGS (8)
  1. BYETTA [Suspect]
     Indication: TYPE 2 DIABETES MELLITUS
     Dosage: 5 UG, 2/D
     Dates: start: 20100421, end: 20100504
  2. METFORMIN HCL [Concomitant]
     Indication: DIABETES MELLITUS
     Dosage: 1000 MG, 2/D
     Route: 048
  3. GLIPIZIDE [Concomitant]
     Indication: DIABETES MELLITUS
     Dosage: 10 MG, 2/D
     Route: 048
  4. ASPIRIN [Concomitant]
     Indication: HYPERTENSION
     Dosage: 81 MG, UNK
     Route: 048
  5. CALCIUM MAGNESIUM [Concomitant]
     Dosage: 2 D/F, DAILY (1/D)
  6. CHONDROITIN SULFATE [Concomitant]
     Dosage: 1 D/F, DAILY (1/D)
  7. HYDROCHLOROTHIAZIDE [Concomitant]
     Indication: HYPERTENSION
     Dosage: 25 MG, DAILY (1/D)
  8. SANDOSTATIN [Concomitant]
     Dosage: 30 MG, MONTHLY (1/M)
     Dates: start: 20040801

REACTIONS (2)
  - INJECTION SITE RASH [None]
  - NEUROENDOCRINE TUMOUR [None]
